FAERS Safety Report 5938006-3 (Version None)
Quarter: 2008Q4

REPORT INFORMATION
  Report Type: 
  Country: None (occurrence: None)
  Receive Date: 20081031
  Receipt Date: 20081024
  Transmission Date: 20090506
  Serious: Yes (Disabling)
  Sender: FDA-Public Use
  Company Number: DE-AMGEN-US316039

PATIENT
  Age: 42 Year
  Sex: Male

DRUGS (3)
  1. ENBREL [Suspect]
     Indication: DRUG USE FOR UNKNOWN INDICATION
     Route: 058
     Dates: start: 20071121, end: 20080318
  2. OMEPRAZOLE [Concomitant]
     Route: 048
  3. DICLOFENAC [Concomitant]
     Route: 065

REACTIONS (1)
  - TYPE 2 DIABETES MELLITUS [None]
